FAERS Safety Report 7997595-8 (Version None)
Quarter: 2011Q4

REPORT INFORMATION
  Report Type: 
  Country: None (occurrence: None)
  Receive Date: 20111221
  Receipt Date: 20111214
  Transmission Date: 20120403
  Serious: Yes (Other)
  Sender: FDA-Public Use
  Company Number: DE-ROCHE-1022627

PATIENT
  Age: 20 Year
  Sex: Female

DRUGS (1)
  1. LARIAM [Suspect]
     Indication: MALARIA PROPHYLAXIS
     Route: 048
     Dates: start: 20110901

REACTIONS (5)
  - LOSS OF CONSCIOUSNESS [None]
  - DIZZINESS [None]
  - WHITE BLOOD CELL COUNT INCREASED [None]
  - HEADACHE [None]
  - PYREXIA [None]
